FAERS Safety Report 23056177 (Version 1)
Quarter: 2023Q4

REPORT INFORMATION
  Report Type: Spontaneous
  Country: NL (occurrence: NL)
  Receive Date: 20231011
  Receipt Date: 20231011
  Transmission Date: 20240110
  Serious: Yes (Other)
  Sender: FDA-Public Use
  Company Number: None

PATIENT
  Age: 78 Year
  Sex: Female
  Weight: 68 kg

DRUGS (11)
  1. ANASTROZOLE [Suspect]
     Active Substance: ANASTROZOLE
     Indication: Breast cancer
     Dosage: TABLET, 1 MG (MILLIGRAM)
     Route: 065
     Dates: start: 20230711, end: 20230719
  2. ROSUVASTATIN [Concomitant]
     Active Substance: ROSUVASTATIN
     Dosage: TABLET, 10 MG (MILLIGRAM)
     Route: 065
  3. DULOXETINE [Concomitant]
     Active Substance: DULOXETINE
     Dosage: GASTRO-RESISTANT CAPSULE, 30 MG (MILLIGRAM)
     Route: 065
  4. ESOMEPRAZOLE [Concomitant]
     Active Substance: ESOMEPRAZOLE
     Dosage: GASTRO-RESISTANT CAPSULE, 20 MG (MILLIGRAM)
     Route: 065
  5. INSULIN DEGLUDEC [Concomitant]
     Active Substance: INSULIN DEGLUDEC
     Dosage: INJECTION FLUID,100 UNITS/ML(UNITS PER MILLILITER)
     Route: 065
  6. HYDROXOCOBALAMIN HYDROCHLORIDE [Concomitant]
     Active Substance: HYDROXOCOBALAMIN HYDROCHLORIDE
     Dosage: INJECTION SOLUTION, 500 MICROGRAMS PER MILLILITRE
     Route: 065
  7. AZITHROMYCIN [Concomitant]
     Active Substance: AZITHROMYCIN
     Dosage: TABLET, 250 MG (MILLIGRAM)
     Route: 065
  8. CANDESARTAN [Concomitant]
     Active Substance: CANDESARTAN
     Dosage: TABLET, 4 MG (MILLIGRAM)
     Route: 065
  9. CHOLECALCIFEROL [Concomitant]
     Active Substance: CHOLECALCIFEROL
     Dosage: CAPSULE, 800 UNITS
     Route: 065
  10. ASPIRIN [Concomitant]
     Active Substance: ASPIRIN
     Dosage: TABLET, 80 MG (MILLIGRAM)
     Route: 065
  11. ZOLPIDEM [Concomitant]
     Active Substance: ZOLPIDEM TARTRATE
     Dosage: TABLET, 10 MG (MILLIGRAM)
     Route: 065

REACTIONS (2)
  - Diabetes mellitus inadequate control [Recovered/Resolved]
  - Hyperglycaemia [Recovered/Resolved]
